FAERS Safety Report 14075565 (Version 1)
Quarter: 2017Q4

REPORT INFORMATION
  Report Type: Spontaneous
  Country: US (occurrence: US)
  Receive Date: 20171010
  Receipt Date: 20171010
  Transmission Date: 20180321
  Serious: No
  Sender: FDA-Public Use
  Company Number: US-MYLANLABS-2016M1044044

PATIENT
  Sex: Male

DRUGS (3)
  1. CHOLESTEROL HEALTH [Concomitant]
     Indication: BLOOD CHOLESTEROL INCREASED
     Dosage: UNK
  2. ASPIRIN                            /00002701/ [Concomitant]
     Active Substance: ASPIRIN
     Indication: PRODUCT USED FOR UNKNOWN INDICATION
     Dosage: UNK
  3. NITROGLYCERIN TRANSDERMAL DELIVERY SYSTEM [Suspect]
     Active Substance: NITROGLYCERIN
     Indication: CHEST PAIN
     Dosage: 0.1 MG, QD, 12 HRS ON, 12 HRS OFF
     Route: 062
     Dates: start: 201511

REACTIONS (3)
  - Application site erythema [Not Recovered/Not Resolved]
  - Application site rash [Not Recovered/Not Resolved]
  - Application site irritation [Not Recovered/Not Resolved]

NARRATIVE: CASE EVENT DATE: 2016
